FAERS Safety Report 5087035-3 (Version None)
Quarter: 2006Q3

REPORT INFORMATION
  Report Type: 
  Country: None (occurrence: None)
  Receive Date: 20060821
  Receipt Date: 20060807
  Transmission Date: 20061208
  Serious: Yes (Other)
  Sender: FDA-Public Use
  Company Number: HQWYE552730MAY06

PATIENT
  Age: 22 Year
  Sex: Female

DRUGS (2)
  1. EFFEXOR XR [Suspect]
     Indication: DEPRESSION
     Dosage: 150 MG 1X PER 1 DAY
     Dates: start: 20060405
  2. KLONOPIN [Concomitant]

REACTIONS (2)
  - CRYING [None]
  - SELF-INJURIOUS IDEATION [None]
